FAERS Safety Report 24637160 (Version 1)
Quarter: 2024Q4

REPORT INFORMATION
  Report Type: Report from Study
  Country: US (occurrence: US)
  Receive Date: 20241119
  Receipt Date: 20241119
  Transmission Date: 20250115
  Serious: Yes (Hospitalization, Other)
  Sender: ROCHE
  Company Number: US-ROCHE-10000129840

PATIENT
  Age: 66 Year
  Sex: Male
  Weight: 83.46 kg

DRUGS (2)
  1. OCREVUS [Suspect]
     Active Substance: OCRELIZUMAB
     Indication: Primary progressive multiple sclerosis
     Route: 042
     Dates: start: 2017, end: 202405
  2. OCREVUS [Suspect]
     Active Substance: OCRELIZUMAB
     Indication: Ataxia
     Route: 042
     Dates: end: 20210424

REACTIONS (4)
  - Enterobacter sepsis [Recovered/Resolved]
  - Urinary tract infection [Recovered/Resolved]
  - Multiple sclerosis [Unknown]
  - Clostridium difficile colitis [Recovered/Resolved]

NARRATIVE: CASE EVENT DATE: 20240601
